FAERS Safety Report 7767022-4 (Version None)
Quarter: 2011Q3

REPORT INFORMATION
  Report Type: 
  Country: None (occurrence: None)
  Receive Date: 20110922
  Receipt Date: 20101015
  Transmission Date: 20111222
  Serious: Yes (Other)
  Sender: FDA-Public Use
  Company Number: US-ASTRAZENECA-2009UW07819

PATIENT
  Age: 15439 Day
  Sex: Male
  Weight: 115.7 kg

DRUGS (7)
  1. SEROQUEL [Suspect]
     Indication: BIPOLAR DISORDER
     Dosage: 100 TO 300 MG
     Route: 048
     Dates: start: 20060901, end: 20080701
  2. SEROQUEL [Suspect]
     Route: 048
     Dates: start: 20061001, end: 20090201
  3. SEROQUEL [Suspect]
     Dosage: 100 TO 300 MG
     Route: 048
     Dates: start: 20061026, end: 20080606
  4. SEROQUEL [Suspect]
     Dosage: 100 TO 300 MG
     Route: 048
     Dates: start: 20061026, end: 20080606
  5. ABILIFY [Concomitant]
  6. SEROQUEL [Suspect]
     Indication: DEPRESSION
     Dosage: 100 TO 300 MG
     Route: 048
     Dates: start: 20060901, end: 20080701
  7. SEROQUEL [Suspect]
     Route: 048
     Dates: start: 20061001, end: 20090201

REACTIONS (3)
  - HYPERTENSION [None]
  - TYPE 2 DIABETES MELLITUS [None]
  - CONVULSION [None]
